FAERS Safety Report 10774305 (Version 1)
Quarter: 2015Q1

REPORT INFORMATION
  Report Type: Spontaneous
  Country: GB (occurrence: GB)
  Receive Date: 20150209
  Receipt Date: 20150209
  Transmission Date: 20150721
  Serious: Yes (Death)
  Sender: FDA-Public Use
  Company Number: GB-ROCHE-1534517

PATIENT
  Age: 83 Year
  Sex: Male

DRUGS (1)
  1. MIRCERA [Suspect]
     Active Substance: PEGZEREPOETIN ALFA
     Indication: PRODUCT USED FOR UNKNOWN INDICATION
     Dosage: 50 MICROGRAMS/ 0.3ML SOLUTION FOR INJECTION
     Route: 065

REACTIONS (1)
  - Death [Fatal]
